FAERS Safety Report 15345388 (Version 2)
Quarter: 2018Q3

REPORT INFORMATION
  Report Type: Report from Study
  Country: CA (occurrence: CA)
  Receive Date: 20180903
  Receipt Date: 20180917
  Transmission Date: 20181010
  Serious: Yes (Hospitalization, Other)
  Sender: FDA-Public Use
  Company Number: CA-SHIRE-CA201831427AA

PATIENT

DRUGS (1)
  1. HUMAN NORMAL IMMUNOGLOBULIN; LIQUID 20 [Suspect]
     Active Substance: HUMAN IMMUNOGLOBULIN G
     Indication: SECONDARY IMMUNODEFICIENCY
     Dosage: 6 MG, 1X/WEEK
     Route: 058
     Dates: start: 20180603

REACTIONS (4)
  - Pneumonia [Unknown]
  - Unevaluable event [Unknown]
  - Musculoskeletal chest pain [Unknown]
  - Malaise [Unknown]
